FAERS Safety Report 8199231-7 (Version None)
Quarter: 2012Q1

REPORT INFORMATION
  Report Type: 
  Country: None (occurrence: None)
  Receive Date: 20120309
  Receipt Date: 20120227
  Transmission Date: 20120608
  Serious: Yes (Hospitalization, Other)
  Sender: FDA-Public Use
  Company Number: US-ELI_LILLY_AND_COMPANY-US201202007949

PATIENT
  Age: 38 Year
  Sex: Male

DRUGS (2)
  1. CHANTIX [Concomitant]
     Route: 048
  2. ZYPREXA [Suspect]

REACTIONS (2)
  - WEIGHT INCREASED [None]
  - MYOCARDIAL INFARCTION [None]
